FAERS Safety Report 5697362-4 (Version None)
Quarter: 2008Q2

REPORT INFORMATION
  Report Type: 
  Country: None (occurrence: None)
  Receive Date: 20080408
  Receipt Date: 20080403
  Transmission Date: 20081010
  Serious: Yes (Other)
  Sender: FDA-Public Use
  Company Number: JP-WYE-H03463908

PATIENT
  Age: 60 Year
  Sex: Male

DRUGS (1)
  1. HYPEN [Suspect]
     Route: 048
     Dates: start: 20060501, end: 20060601

REACTIONS (1)
  - DRUG ERUPTION [None]
